FAERS Safety Report 7958572-6 (Version None)
Quarter: 2011Q4

REPORT INFORMATION
  Report Type: 
  Country: None (occurrence: None)
  Receive Date: 20111206
  Receipt Date: 20111130
  Transmission Date: 20120403
  Serious: No
  Sender: FDA-Public Use
  Company Number: US-BIOGENIDEC-2011BI045337

PATIENT
  Sex: Female

DRUGS (14)
  1. TYSABRI [Suspect]
     Indication: MULTIPLE SCLEROSIS
     Route: 042
     Dates: start: 20111118
  2. ZANAFLEX [Concomitant]
     Indication: MUSCULAR WEAKNESS
     Dates: start: 20111121, end: 20111128
  3. ZANAFLEX [Concomitant]
     Indication: GAIT DISTURBANCE
     Dates: start: 20111121, end: 20111128
  4. OTC MEDICATION (NOS) [Concomitant]
     Indication: HYPERSENSITIVITY
  5. NORFLEX [Concomitant]
     Indication: BALANCE DISORDER
     Dates: start: 20111114, end: 20111121
  6. NORFLEX [Concomitant]
     Indication: MUSCULAR WEAKNESS
     Dates: start: 20111114, end: 20111121
  7. NORFLEX [Concomitant]
     Indication: GAIT DISTURBANCE
     Dates: start: 20111114, end: 20111121
  8. ZANAFLEX [Concomitant]
     Indication: BALANCE DISORDER
     Dates: start: 20111121, end: 20111128
  9. BACLOFEN [Concomitant]
     Indication: GAIT DISTURBANCE
     Dates: start: 20111128
  10. BACLOFEN [Concomitant]
     Indication: MUSCULAR WEAKNESS
     Dates: start: 20111128
  11. BACLOFEN [Concomitant]
     Indication: BALANCE DISORDER
     Dates: start: 20111128
  12. NORFLEX [Concomitant]
     Indication: MUSCLE TIGHTNESS
     Dates: start: 20111114, end: 20111121
  13. ZANAFLEX [Concomitant]
     Indication: MUSCLE TIGHTNESS
     Dates: start: 20111121, end: 20111128
  14. BACLOFEN [Concomitant]
     Indication: MUSCLE TIGHTNESS
     Dates: start: 20111128

REACTIONS (3)
  - MULTIPLE ALLERGIES [None]
  - HYPERTENSION [None]
  - SOMNOLENCE [None]
